FAERS Safety Report 5161794-3 (Version None)
Quarter: 2006Q4

REPORT INFORMATION
  Report Type: 
  Country: None (occurrence: None)
  Receive Date: 20061130
  Receipt Date: 20061124
  Transmission Date: 20070319
  Serious: Yes (Hospitalization)
  Sender: FDA-Public Use
  Company Number: ES-MERCK-0611ESP00030

PATIENT
  Age: 14 Year
  Sex: Male

DRUGS (4)
  1. SINGULAIR [Suspect]
     Indication: ASTHMA
     Route: 048
     Dates: start: 20060101, end: 20060101
  2. SINGULAIR [Suspect]
     Route: 048
     Dates: start: 20061001, end: 20061101
  3. SALMETEROL XINAFOATE [Concomitant]
     Indication: ASTHMA
  4. IMMUNOTHERAPY (UNSPECIFIED) [Concomitant]
     Indication: FOOD ALLERGY
     Route: 065
     Dates: start: 20060901

REACTIONS (1)
  - MANIA [None]
